FAERS Safety Report 21179747 (Version 2)
Quarter: 2023Q2

REPORT INFORMATION
  Report Type: Spontaneous
  Country: US (occurrence: US)
  Receive Date: 20220805
  Receipt Date: 20230407
  Transmission Date: 20230722
  Serious: No
  Sender: FDA-Public Use
  Company Number: US-LUPIN PHARMACEUTICALS INC.-2022-09945

PATIENT

DRUGS (1)
  1. ALBUTEROL SULFATE [Suspect]
     Active Substance: ALBUTEROL SULFATE
     Indication: Product used for unknown indication
     Dosage: UNK UNK, QID  2 PUFFS BY MOUTH EVERY 6 HOURS
     Dates: start: 202203

REACTIONS (3)
  - Wrong technique in product usage process [Unknown]
  - Device delivery system issue [Unknown]
  - No adverse event [Unknown]
